FAERS Safety Report 11676215 (Version 1)
Quarter: 2015Q4

REPORT INFORMATION
  Report Type: Spontaneous
  Country: US (occurrence: US)
  Receive Date: 20151027
  Receipt Date: 20151027
  Transmission Date: 20160304
  Serious: No
  Sender: FDA-Public Use
  Company Number: US-ELI_LILLY_AND_COMPANY-US201008005975

PATIENT
  Sex: Female

DRUGS (4)
  1. CALCIUM [Concomitant]
     Active Substance: CALCIUM
  2. VITAMIN D [Concomitant]
     Active Substance: CHOLECALCIFEROL
     Dosage: 2000 IU, DAILY (1/D)
  3. VITAMIN D [Concomitant]
     Active Substance: CHOLECALCIFEROL
     Dosage: 4000 IU, DAILY (1/D)
  4. FORTEO [Suspect]
     Active Substance: TERIPARATIDE
     Indication: OSTEOPOROSIS
     Dosage: 20 UG, DAILY (1/D)
     Dates: start: 20100518, end: 201009

REACTIONS (14)
  - Injection site erythema [Unknown]
  - Dysstasia [Unknown]
  - Arthralgia [Unknown]
  - Hypophagia [Unknown]
  - Pain [Unknown]
  - Fatigue [Unknown]
  - Pain in extremity [Unknown]
  - Blood calcium increased [Unknown]
  - Muscular weakness [Unknown]
  - Decreased appetite [Unknown]
  - Hot flush [Unknown]
  - Feeling hot [Unknown]
  - Feeling abnormal [Unknown]
  - Nausea [Unknown]

NARRATIVE: CASE EVENT DATE: 2010
